FAERS Safety Report 8904081 (Version 1)
Quarter: 2012Q4

REPORT INFORMATION
  Report Type: 
  Country: US (occurrence: US)
  Receive Date: 20121112
  Receipt Date: 20121112
  Transmission Date: 20130627
  Serious: No
  Sender: FDA-Public Use
  Company Number: US-COVIDIEN/TYCO HEALTHCARE/MALLINCKRODT-T201203424

PATIENT
  Age: 66 Year
  Sex: Female

DRUGS (5)
  1. FENTANYL TRANSDERMAL SYSTEM [Suspect]
     Indication: BACK PAIN
     Dosage: 25 ug/hr, Q 48 hrs
     Route: 062
     Dates: start: 20120911, end: 20120912
  2. FENTANYL [Concomitant]
     Indication: BACK PAIN
  3. HYDROCODONE BITARTRATE AND ACETAMINOPHEN [Concomitant]
     Indication: BREAKTHROUGH PAIN
     Dosage: prn
     Route: 048
  4. BIDIL [Concomitant]
     Indication: HYPERTENSION
     Dosage: QD
     Route: 048
  5. CELEXA                             /00582602/ [Concomitant]
     Indication: DEPRESSION
     Dosage: QD

REACTIONS (4)
  - Muscle tightness [Recovered/Resolved]
  - Hyperhidrosis [Recovered/Resolved]
  - Headache [Recovered/Resolved]
  - Nausea [Recovered/Resolved]
